FAERS Safety Report 8788619 (Version 1)
Quarter: 2012Q4

REPORT INFORMATION
  Report Type: 
  Country: SE (occurrence: SE)
  Receive Date: 20120917
  Receipt Date: 20120917
  Transmission Date: 20130627
  Serious: Yes (Hospitalization)
  Sender: FDA-Public Use
  Company Number: SE-JNJFOC-20120902797

PATIENT
  Age: 54 Year
  Sex: Male

DRUGS (4)
  1. SIMPONI [Suspect]
     Indication: ANKYLOSING SPONDYLITIS
     Route: 058
     Dates: start: 2012, end: 201204
  2. SIMPONI [Suspect]
     Indication: ANKYLOSING SPONDYLITIS
     Route: 058
     Dates: start: 201203
  3. OMEPRAZOLE [Concomitant]
     Route: 065
  4. VOLTAREN [Concomitant]
     Route: 048

REACTIONS (3)
  - Pericarditis [Not Recovered/Not Resolved]
  - Pleurisy [Not Recovered/Not Resolved]
  - Depression [Recovered/Resolved]
